FAERS Safety Report 18205351 (Version 1)
Quarter: 2020Q3

REPORT INFORMATION
  Report Type: Spontaneous
  Country: US (occurrence: US)
  Receive Date: 20200827
  Receipt Date: 20200827
  Transmission Date: 20201103
  Serious: No
  Sender: FDA-Public Use
  Company Number: US-MYLANLABS-2020M1071690

PATIENT
  Age: 86 Year
  Sex: Female
  Weight: 51 kg

DRUGS (1)
  1. WIXELA INHUB [Suspect]
     Active Substance: FLUTICASONE PROPIONATE\SALMETEROL XINAFOATE
     Indication: ASTHMA
     Dosage: 100/50 MICROGRAM, TWICE DAILY
     Route: 055
     Dates: start: 202002

REACTIONS (4)
  - Device issue [Recovering/Resolving]
  - Device use issue [Unknown]
  - Dysphonia [Not Recovered/Not Resolved]
  - Product quality issue [Recovering/Resolving]

NARRATIVE: CASE EVENT DATE: 2020
